FAERS Safety Report 10372147 (Version 5)
Quarter: 2015Q2

REPORT INFORMATION
  Report Type: Spontaneous
  Country: US (occurrence: US)
  Receive Date: 20140808
  Receipt Date: 20150513
  Transmission Date: 20150821
  Serious: Yes (Death, Hospitalization, Disabling, Other)
  Sender: FDA-Public Use
  Company Number: US-MERCK-1408USA004696

PATIENT
  Sex: Male
  Weight: 102.95 kg

DRUGS (1)
  1. JANUVIA [Suspect]
     Active Substance: SITAGLIPTIN PHOSPHATE
     Indication: TYPE 2 DIABETES MELLITUS
     Dosage: 100 MG, QD
     Route: 048
     Dates: start: 20090228, end: 20120420

REACTIONS (25)
  - Metastases to lymph nodes [Unknown]
  - Pancreatic stent placement [Unknown]
  - Haemorrhoid operation [Unknown]
  - Pancreatic carcinoma metastatic [Fatal]
  - Metastases to liver [Unknown]
  - Biliary drainage [Unknown]
  - Transaminases increased [Unknown]
  - Gout [Unknown]
  - Hernia repair [Unknown]
  - Hepatic cyst [Unknown]
  - Haemorrhoids [Unknown]
  - Nephrolithiasis [Unknown]
  - Pleural effusion [Unknown]
  - Atelectasis [Unknown]
  - Anaemia [Unknown]
  - Hypercholesterolaemia [Unknown]
  - Cholelithiasis [Unknown]
  - Gastrooesophageal reflux disease [Unknown]
  - Leukocytosis [Unknown]
  - Hyponatraemia [Unknown]
  - Pancreatobiliary sphincterotomy [Unknown]
  - Cerumen impaction [Unknown]
  - Hypertension [Unknown]
  - Diverticulum [Unknown]
  - Polyp [Unknown]

NARRATIVE: CASE EVENT DATE: 201012
